FAERS Safety Report 18781333 (Version 2)
Quarter: 2021Q1

REPORT INFORMATION
  Report Type: Spontaneous
  Country: DE (occurrence: DE)
  Receive Date: 20210125
  Receipt Date: 20210224
  Transmission Date: 20210419
  Serious: Yes (Other)
  Sender: FDA-Public Use
  Company Number: DE-PFIZER INC-2021039609

PATIENT
  Age: 83 Year
  Sex: Female
  Weight: 88 kg

DRUGS (6)
  1. PREDNISOLONE SODIUM SUCCINATE [Suspect]
     Active Substance: PREDNISOLONE SODIUM SUCCINATE
     Dosage: 1 TABLET
     Route: 048
  2. MIRTAZAPIN [Suspect]
     Active Substance: MIRTAZAPINE
     Dosage: 1 TABLET
     Route: 048
  3. DIOVAN [Suspect]
     Active Substance: VALSARTAN
     Dosage: 1 TABLET
     Route: 048
  4. AMLODIPINE BESILATE [Suspect]
     Active Substance: AMLODIPINE BESYLATE
     Dosage: 10 TABLET
     Route: 048
  5. CALCIUM SANDOZ FORTE D [CALCIUM CARBONATE\CALCIUM GLUCEPTATE\CHOLECALCIFEROL] [Suspect]
     Active Substance: CALCIUM CARBONATE\CALCIUM GLUCEPTATE\CHOLECALCIFEROL
     Dosage: 1 TABLET
     Route: 048
  6. VIGANTOL [COLECALCIFEROL] [Suspect]
     Active Substance: CHOLECALCIFEROL
     Dosage: 1 TABLET
     Route: 048
     Dates: start: 20201216, end: 20201216

REACTIONS (7)
  - Intentional self-injury [Unknown]
  - Hypothermia [Recovering/Resolving]
  - Fatigue [Recovering/Resolving]
  - Tremor [Recovering/Resolving]
  - Somnolence [Recovering/Resolving]
  - Suicide attempt [Unknown]
  - Overdose [Unknown]

NARRATIVE: CASE EVENT DATE: 20201216
